FAERS Safety Report 4959295-8 (Version None)
Quarter: 2006Q1

REPORT INFORMATION
  Report Type: 
  Country: None (occurrence: None)
  Receive Date: 20060331
  Receipt Date: 20060321
  Transmission Date: 20060701
  Serious: Yes (Other)
  Sender: FDA-Public Use
  Company Number: FR-JNJFOC-20060306653

PATIENT
  Age: 80 Year
  Sex: Female

DRUGS (1)
  1. REMINYL [Suspect]
     Route: 048

REACTIONS (1)
  - ARRHYTHMIA [None]
